FAERS Safety Report 21947924 (Version 1)
Quarter: 2023Q1

REPORT INFORMATION
  Report Type: Other
  Country: None (occurrence: KR)
  Receive Date: 20230203
  Receipt Date: 20230203
  Transmission Date: 20230417
  Serious: Yes (Hospitalization)
  Sender: FDA-Public Use
  Company Number: KR-ACI HealthCare Limited-2137449

PATIENT
  Age: 69 Year
  Sex: Female

DRUGS (5)
  1. LEVETIRACETAM [Suspect]
     Active Substance: LEVETIRACETAM
     Indication: Status epilepticus
     Route: 048
  2. DONEPEZIL [Interacting]
     Active Substance: DONEPEZIL
     Route: 065
  3. PHENYTOIN [Interacting]
     Active Substance: PHENYTOIN
     Route: 042
  4. MEMANTINE [Concomitant]
     Active Substance: MEMANTINE
     Route: 065
  5. CIPROFLOXACIN [Concomitant]
     Active Substance: CIPROFLOXACIN
     Route: 065

REACTIONS (2)
  - Tremor [Recovered/Resolved]
  - Drug interaction [Recovered/Resolved]
